FAERS Safety Report 17727464 (Version 1)
Quarter: 2020Q2

REPORT INFORMATION
  Report Type: Spontaneous
  Country: US (occurrence: US)
  Receive Date: 20200430
  Receipt Date: 20200430
  Transmission Date: 20200714
  Serious: No
  Sender: FDA-Public Use
  Company Number: US-PFIZER INC-2019415381

PATIENT
  Age: 70 Year
  Sex: Male
  Weight: 81.55 kg

DRUGS (3)
  1. CELEBREX [Suspect]
     Active Substance: CELECOXIB
     Indication: ARTHRITIS
  2. CELEBREX [Suspect]
     Active Substance: CELECOXIB
     Indication: GENERALISED ANXIETY DISORDER
     Dosage: 200 MG, 2X/DAY
     Route: 048
  3. MORPHINE [Concomitant]
     Active Substance: MORPHINE
     Dosage: UNK (PUMP)

REACTIONS (3)
  - Back disorder [Unknown]
  - Arthropathy [Unknown]
  - Visual impairment [Unknown]
